FAERS Safety Report 7291914-6 (Version None)
Quarter: 2011Q1

REPORT INFORMATION
  Report Type: 
  Country: None (occurrence: None)
  Receive Date: 20110214
  Receipt Date: 20110208
  Transmission Date: 20110831
  Serious: Yes (Hospitalization, Other)
  Sender: FDA-Public Use
  Company Number: US-B.I. PHARMACEUTICALS,INC./RIDGEFIELD-2011-BP-02315BP

PATIENT
  Sex: Male

DRUGS (6)
  1. MIRAPEX [Suspect]
     Indication: PERIODIC LIMB MOVEMENT DISORDER
  2. PROVIGIL [Suspect]
     Indication: SLEEP APNOEA SYNDROME
     Dates: end: 20090101
  3. ZYPREXA [Suspect]
     Indication: SLEEP APNOEA SYNDROME
     Dates: end: 20090101
  4. PROVIGIL [Suspect]
     Indication: PERIODIC LIMB MOVEMENT DISORDER
  5. MIRAPEX [Suspect]
     Indication: SLEEP APNOEA SYNDROME
     Dates: end: 20090101
  6. ZYPREXA [Suspect]
     Indication: PERIODIC LIMB MOVEMENT DISORDER

REACTIONS (16)
  - PAIN [None]
  - WEIGHT INCREASED [None]
  - DELAYED SLEEP PHASE [None]
  - CARDIOVASCULAR DISORDER [None]
  - SLEEP DISORDER [None]
  - LEFT VENTRICULAR HYPERTROPHY [None]
  - MENTAL DISORDER [None]
  - DEPRESSION [None]
  - SUICIDAL BEHAVIOUR [None]
  - PSYCHOTIC DISORDER [None]
  - POST-TRAUMATIC STRESS DISORDER [None]
  - EMOTIONAL DISTRESS [None]
  - HYPERTENSION [None]
  - DILATATION ATRIAL [None]
  - METABOLIC SYNDROME [None]
  - COGNITIVE DISORDER [None]
